FAERS Safety Report 6676890-9 (Version None)
Quarter: 2010Q2

REPORT INFORMATION
  Report Type: 
  Country: None (occurrence: None)
  Receive Date: 20100412
  Receipt Date: 20100401
  Transmission Date: 20101027
  Serious: Yes (Death, Hospitalization)
  Sender: FDA-Public Use
  Company Number: US-ROCHE-691549

PATIENT
  Sex: Male
  Weight: 69.4 kg

DRUGS (9)
  1. BEVACIZUMAB [Suspect]
     Route: 042
     Dates: start: 20100210
  2. PEMETREXED [Suspect]
     Dosage: GIVEN OVER 10 MINUTES
     Route: 042
     Dates: start: 20100210
  3. CARBOPLATIN [Suspect]
     Dosage: DOSE: 5 AUC
     Route: 042
     Dates: start: 20100210
  4. LIPITOR [Concomitant]
     Dates: start: 20100101
  5. AMBIEN [Concomitant]
     Dosage: FREQUNCY: AT BEDTIME
     Dates: start: 20100101
  6. CITALOPRAM HYDROBROMIDE [Concomitant]
     Dates: start: 20100101
  7. HYDROCODONE BITARTRATE [Concomitant]
     Dates: start: 20100101
  8. MS CONTIN [Concomitant]
     Dosage: DOSING AMOUNT: 45 MG IN AM AND 15 MG IN PM
     Dates: start: 20100101
  9. LORTAB [Concomitant]
     Dates: start: 20100101

REACTIONS (3)
  - HYPOXIA [None]
  - MENTAL STATUS CHANGES [None]
  - RESPIRATORY FAILURE [None]
